FAERS Safety Report 4560850-8 (Version None)
Quarter: 2005Q1

REPORT INFORMATION
  Report Type: 
  Country: None (occurrence: None)
  Receive Date: 20050126
  Receipt Date: 20040123
  Transmission Date: 20050727
  Serious: Yes (Hospitalization)
  Sender: FDA-Public Use
  Company Number: 200410191JP

PATIENT
  Age: 71 Year
  Sex: Female

DRUGS (8)
  1. ARAVA [Suspect]
     Indication: RHEUMATOID ARTHRITIS
     Route: 048
     Dates: start: 20031007, end: 20040106
  2. SHIOSOL [Concomitant]
     Indication: RHEUMATOID ARTHRITIS
     Route: 030
     Dates: end: 20040120
  3. PROMAC                                  /JPN/ [Concomitant]
     Route: 048
     Dates: start: 20030623, end: 20040106
  4. FAMOTIDINE [Concomitant]
     Route: 048
     Dates: start: 20030819, end: 20031019
  5. FRANDOL [Concomitant]
     Route: 048
     Dates: start: 20030209, end: 20040109
  6. NAPROXEN [Concomitant]
     Route: 048
     Dates: start: 20030819, end: 20040119
  7. KETOPROFEN [Concomitant]
     Route: 062
     Dates: start: 20030819, end: 20031020
  8. TAKEPRON [Concomitant]
     Indication: GASTRIC ULCER
     Route: 048
     Dates: start: 20031021, end: 20031216

REACTIONS (14)
  - ABDOMINAL PAIN [None]
  - ABDOMINAL PAIN UPPER [None]
  - CHEST X-RAY ABNORMAL [None]
  - COUGH [None]
  - DYSPNOEA [None]
  - HAEMOGLOBIN DECREASED [None]
  - HEPATITIS C [None]
  - LYMPHOCYTE PERCENTAGE DECREASED [None]
  - NASOPHARYNGITIS [None]
  - NEUTROPHIL PERCENTAGE INCREASED [None]
  - PLATELET COUNT DECREASED [None]
  - PYREXIA [None]
  - REFLUX OESOPHAGITIS [None]
  - STOMATITIS [None]
